FAERS Safety Report 8886821 (Version 12)
Quarter: 2016Q1

REPORT INFORMATION
  Report Type: Report from Study
  Country: US (occurrence: US)
  Receive Date: 20121105
  Receipt Date: 20160302
  Transmission Date: 20160526
  Serious: Yes (Other)
  Sender: FDA-Public Use
  Company Number: US-ROCHE-1142483

PATIENT
  Age: 75 Year
  Sex: Female
  Weight: 81.72 kg

DRUGS (40)
  1. ZELBORAF [Suspect]
     Active Substance: VEMURAFENIB
     Indication: METASTATIC MALIGNANT MELANOMA
     Route: 048
     Dates: start: 20120216, end: 20120320
  2. POTASSIUM CHLORIDE SR [Concomitant]
     Route: 048
  3. XANAX [Concomitant]
     Active Substance: ALPRAZOLAM
     Indication: ANXIETY
     Route: 048
  4. TRIPLE MIX (UNK INGREDIENTS) [Concomitant]
     Route: 048
  5. ZELBORAF [Suspect]
     Active Substance: VEMURAFENIB
     Route: 048
     Dates: start: 20120216
  6. ZELBORAF [Suspect]
     Active Substance: VEMURAFENIB
     Route: 048
     Dates: start: 201203, end: 201210
  7. CIPROFLOXACIN. [Concomitant]
     Active Substance: CIPROFLOXACIN
     Route: 048
     Dates: start: 20120925
  8. POTASSIUM CHLORIDE SR [Concomitant]
     Route: 048
     Dates: start: 20120614
  9. POTASSIUM CHLORIDE SR [Concomitant]
     Route: 048
  10. CARISOPRODOL. [Concomitant]
     Active Substance: CARISOPRODOL
     Indication: BACK PAIN
     Dosage: AT BED TIME
     Route: 048
  11. ZANTAC [Concomitant]
     Active Substance: RANITIDINE HYDROCHLORIDE
     Route: 048
  12. PHENERGAN [Concomitant]
     Active Substance: PROMETHAZINE HYDROCHLORIDE
     Indication: NAUSEA
     Route: 048
  13. MIRALAX [Concomitant]
     Active Substance: POLYETHYLENE GLYCOL 3350
  14. ZELBORAF [Suspect]
     Active Substance: VEMURAFENIB
     Route: 048
  15. ZELBORAF [Suspect]
     Active Substance: VEMURAFENIB
     Route: 048
     Dates: start: 201210
  16. DILTIAZEM [Concomitant]
     Active Substance: DILTIAZEM
     Indication: HYPERTENSION
     Route: 048
  17. TIZANIDINE. [Concomitant]
     Active Substance: TIZANIDINE
     Route: 065
  18. ZELBORAF [Suspect]
     Active Substance: VEMURAFENIB
     Indication: LUNG NEOPLASM MALIGNANT
     Route: 048
     Dates: start: 201203, end: 201204
  19. VALIUM [Concomitant]
     Active Substance: DIAZEPAM
     Route: 048
  20. SENNA S [Concomitant]
     Active Substance: DOCUSATE SODIUM\SENNA LEAF
     Dosage: 8.6-50 MG
     Route: 048
  21. MS CONTIN [Concomitant]
     Active Substance: MORPHINE SULFATE
     Indication: BACK PAIN
     Route: 048
  22. HYDROCODONE BITARTRATE/ACETAMINOPHEN [Concomitant]
     Active Substance: ACETAMINOPHEN\HYDROCODONE BITARTRATE
     Indication: BACK PAIN
     Dosage: 10-325 MG
     Route: 048
     Dates: start: 20120614
  23. ALBUTEROL INHALATION SOLUTION [Concomitant]
     Active Substance: ALBUTEROL
     Indication: EMPHYSEMA
  24. MORPHINE SULPHATE [Concomitant]
     Active Substance: MORPHINE SULFATE
     Route: 048
  25. VITAMIN D3 [Concomitant]
     Active Substance: CHOLECALCIFEROL
     Route: 048
  26. ZELBORAF [Suspect]
     Active Substance: VEMURAFENIB
     Route: 048
     Dates: start: 20120519
  27. ZELBORAF [Suspect]
     Active Substance: VEMURAFENIB
     Route: 048
     Dates: start: 20120305
  28. ALBUTEROL SULFATE. [Concomitant]
     Active Substance: ALBUTEROL SULFATE
     Route: 065
  29. FISH OIL [Concomitant]
     Active Substance: FISH OIL
     Route: 048
  30. PREDNISONE. [Concomitant]
     Active Substance: PREDNISONE
     Route: 048
  31. ZELBORAF [Suspect]
     Active Substance: VEMURAFENIB
     Route: 048
     Dates: start: 20120425
  32. HYDROCODONE BITARTRATE/ACETAMINOPHEN [Concomitant]
     Active Substance: ACETAMINOPHEN\HYDROCODONE BITARTRATE
     Dosage: TAKE 2 TABLET DAILY
     Route: 048
  33. CARISOPRODOL. [Concomitant]
     Active Substance: CARISOPRODOL
     Indication: MUSCLE SPASMS
  34. NEURONTIN [Concomitant]
     Active Substance: GABAPENTIN
     Route: 048
  35. MORPHINE SULPHATE [Concomitant]
     Active Substance: MORPHINE SULFATE
     Route: 048
  36. XANAX [Concomitant]
     Active Substance: ALPRAZOLAM
     Route: 048
  37. HYDROCHLOROTHIAZIDE. [Concomitant]
     Active Substance: HYDROCHLOROTHIAZIDE
     Indication: SWELLING
     Route: 048
     Dates: start: 20120925
  38. GABAPENTIN. [Concomitant]
     Active Substance: GABAPENTIN
     Indication: NEUROPATHY PERIPHERAL
     Dosage: 1-2 TABLETS AT BED TIME
     Route: 048
  39. ALBUTEROL INHALATION SOLUTION [Concomitant]
     Active Substance: ALBUTEROL
     Indication: DYSPNOEA
  40. OMEPRAZOLE. [Concomitant]
     Active Substance: OMEPRAZOLE
     Indication: GASTROOESOPHAGEAL REFLUX DISEASE
     Route: 048

REACTIONS (59)
  - Stomatitis [Not Recovered/Not Resolved]
  - Dysuria [Recovering/Resolving]
  - Blister [Recovering/Resolving]
  - Renal cyst [Not Recovered/Not Resolved]
  - Furuncle [Not Recovered/Not Resolved]
  - Asthenia [Recovering/Resolving]
  - Nausea [Recovering/Resolving]
  - Joint range of motion decreased [Recovering/Resolving]
  - Intervertebral disc degeneration [Unknown]
  - Skin mass [Unknown]
  - Asthenia [Not Recovered/Not Resolved]
  - Erythema [Recovered/Resolved]
  - Cold sweat [Recovered/Resolved]
  - Eye pain [Not Recovered/Not Resolved]
  - Erythema [Not Recovered/Not Resolved]
  - Skin burning sensation [Not Recovered/Not Resolved]
  - Influenza [Unknown]
  - Rash [Unknown]
  - Peripheral swelling [Unknown]
  - Nasal ulcer [Recovered/Resolved]
  - Pain [Recovered/Resolved]
  - Hypoaesthesia [Not Recovered/Not Resolved]
  - Malaise [Unknown]
  - Pain of skin [Unknown]
  - Pelvic pain [Unknown]
  - Syncope [Unknown]
  - Dyspnoea exertional [Unknown]
  - Vomiting [Unknown]
  - Burning sensation [Recovered/Resolved]
  - Generalised erythema [Not Recovered/Not Resolved]
  - Blister [Not Recovered/Not Resolved]
  - Eye pain [Not Recovered/Not Resolved]
  - Muscle spasms [Recovering/Resolving]
  - Arthralgia [Recovering/Resolving]
  - Burning sensation [Not Recovered/Not Resolved]
  - Headache [Not Recovered/Not Resolved]
  - Chills [Recovered/Resolved]
  - Alopecia [Not Recovered/Not Resolved]
  - Photosensitivity reaction [Not Recovered/Not Resolved]
  - Pyrexia [Recovered/Resolved]
  - Eye disorder [Not Recovered/Not Resolved]
  - Hernia [Unknown]
  - Skin exfoliation [Unknown]
  - Decreased appetite [Unknown]
  - Myalgia [Recovered/Resolved]
  - Vision blurred [Not Recovered/Not Resolved]
  - Furuncle [Recovering/Resolving]
  - Paraesthesia [Not Recovered/Not Resolved]
  - Ovarian cyst [Not Recovered/Not Resolved]
  - Dermatitis [Unknown]
  - Fatigue [Unknown]
  - Abasia [Not Recovered/Not Resolved]
  - Cough [Not Recovered/Not Resolved]
  - Chills [Recovered/Resolved]
  - Skin ulcer [Recovering/Resolving]
  - Stomatitis [Recovering/Resolving]
  - Carpal tunnel syndrome [Not Recovered/Not Resolved]
  - Alopecia [Unknown]
  - Swelling [Unknown]

NARRATIVE: CASE EVENT DATE: 20120216
